FAERS Safety Report 18862646 (Version 2)
Quarter: 2022Q3

REPORT INFORMATION
  Report Type: Spontaneous
  Country: US (occurrence: US)
  Receive Date: 20210209
  Receipt Date: 20220922
  Transmission Date: 20221027
  Serious: No
  Sender: FDA-Public Use
  Company Number: US-PURDUE PHARMA-USA-2020-0173186

PATIENT
  Age: 68 Year
  Sex: Female
  Weight: 39.909 kg

DRUGS (11)
  1. BUPRENORPHINE [Suspect]
     Active Substance: BUPRENORPHINE
     Indication: Back pain
     Dosage: 7.5 MCG/HR, WEEKLY
     Route: 062
     Dates: start: 202004
  2. BUPRENORPHINE [Suspect]
     Active Substance: BUPRENORPHINE
     Indication: Rheumatoid arthritis
     Dosage: 10 MCG/HR, WEEKLY
     Route: 062
     Dates: start: 202006
  3. BUPRENORPHINE [Suspect]
     Active Substance: BUPRENORPHINE
     Dosage: 15 MCG/HR, WEEKLY
     Route: 062
  4. BUPRENORPHINE [Suspect]
     Active Substance: BUPRENORPHINE
     Dosage: 10 MCG/HR, WEEKLY
     Route: 062
     Dates: start: 202107
  5. BUTRANS [Suspect]
     Active Substance: BUPRENORPHINE
     Indication: Rheumatoid arthritis
     Dosage: 7.5 MCG/HR, WEEKLY
     Route: 062
     Dates: start: 202005
  6. BUTRANS [Suspect]
     Active Substance: BUPRENORPHINE
     Indication: Pain
     Dosage: 7.5 MCG/HR, WEEKLY
     Route: 062
  7. BUTRANS [Suspect]
     Active Substance: BUPRENORPHINE
     Dosage: UNK
     Route: 062
     Dates: start: 202006
  8. BUTRANS [Suspect]
     Active Substance: BUPRENORPHINE
     Dosage: 10 MCG/HR, WEEKLY
     Route: 062
     Dates: start: 202106
  9. BUTRANS [Suspect]
     Active Substance: BUPRENORPHINE
     Dosage: 15 MCG/HR, UNK
     Route: 062
  10. TRAMADOL [Concomitant]
     Active Substance: TRAMADOL
     Indication: Breakthrough pain
     Dosage: 50 MG, 2-3 DIALY
     Route: 048
     Dates: start: 202103
  11. PREDNISONE [Concomitant]
     Active Substance: PREDNISONE
     Indication: Product used for unknown indication
     Dosage: UNK
     Route: 065

REACTIONS (10)
  - Dermal absorption impaired [Not Recovered/Not Resolved]
  - Stomatitis [Unknown]
  - Skin wrinkling [Unknown]
  - Dry skin [Unknown]
  - Wrong technique in product usage process [Unknown]
  - Application site pruritus [Not Recovered/Not Resolved]
  - Application site rash [Not Recovered/Not Resolved]
  - Application site erythema [Not Recovered/Not Resolved]
  - Drug ineffective [Recovered/Resolved]
  - Product adhesion issue [Unknown]

NARRATIVE: CASE EVENT DATE: 20201001
